FAERS Safety Report 9452880 (Version 1)
Quarter: 2013Q3

REPORT INFORMATION
  Report Type: Spontaneous
  Country: SG (occurrence: SG)
  Receive Date: 20130812
  Receipt Date: 20130812
  Transmission Date: 20140515
  Serious: Yes (Hospitalization, Other)
  Sender: FDA-Public Use
  Company Number: SG-PFIZER INC-2013230027

PATIENT
  Age: 25 Year
  Sex: Female

DRUGS (1)
  1. MISOPROSTOL [Suspect]
     Indication: LABOUR INDUCTION
     Dosage: 400 UG, 1 TIMESTAT
     Route: 048
     Dates: start: 20130703, end: 20130703

REACTIONS (2)
  - Off label use [Unknown]
  - Lip swelling [Recovered/Resolved]
